FAERS Safety Report 4874384-4 (Version None)
Quarter: 2006Q1

REPORT INFORMATION
  Report Type: 
  Country: None (occurrence: None)
  Receive Date: 20060104
  Receipt Date: 20051221
  Transmission Date: 20060701
  Serious: Yes (Hospitalization, Other)
  Sender: FDA-Public Use
  Company Number: 2004089717

PATIENT
  Sex: Male

DRUGS (3)
  1. DILANTIN [Suspect]
     Indication: CONVULSION
     Dosage: (100 MG), ORAL
     Route: 048
     Dates: start: 19680101
  2. VICODIN [Suspect]
     Indication: ILL-DEFINED DISORDER
  3. PHENOBARBITAL TAB [Suspect]
     Indication: ILL-DEFINED DISORDER

REACTIONS (7)
  - BALANCE DISORDER [None]
  - COORDINATION ABNORMAL [None]
  - DRUG LEVEL FLUCTUATING [None]
  - FALL [None]
  - GLAUCOMA [None]
  - NEUROPATHY [None]
  - WEIGHT DECREASED [None]
